FAERS Safety Report 13027173 (Version 1)
Quarter: 2016Q4

REPORT INFORMATION
  Report Type: Spontaneous
  Country: US (occurrence: US)
  Receive Date: 20161214
  Receipt Date: 20161214
  Transmission Date: 20170207
  Serious: Yes (Death)
  Sender: FDA-Public Use
  Company Number: None

PATIENT
  Age: 64 Year
  Sex: Male

DRUGS (19)
  1. HYDROCO/APAP [Concomitant]
     Active Substance: ACETAMINOPHEN\HYDROCODONE
  2. ALLOPURINOL. [Concomitant]
     Active Substance: ALLOPURINOL
  3. HYDROMORPHON [Concomitant]
     Active Substance: HYDROMORPHONE
  4. VOTRIENT [Suspect]
     Active Substance: PAZOPANIB HYDROCHLORIDE
     Indication: RENAL CANCER
     Route: 048
     Dates: start: 201609
  5. MORPHINE SUL [Concomitant]
  6. ONDANSETRON [Concomitant]
     Active Substance: ONDANSETRON
  7. LORAZEPAM. [Concomitant]
     Active Substance: LORAZEPAM
  8. ELIQUIS [Concomitant]
     Active Substance: APIXABAN
  9. OXYCODONE AND ACETAMINOPHEN [Concomitant]
     Active Substance: ACETAMINOPHEN\OXYCODONE HYDROCHLORIDE
  10. ACEPHEN [Concomitant]
     Active Substance: ACETAMINOPHEN
  11. BISAC-EVAC [Concomitant]
     Active Substance: BISACODYL
  12. LIDOCAINE. [Concomitant]
     Active Substance: LIDOCAINE
  13. OXYCODONE [Concomitant]
     Active Substance: OXYCODONE
  14. METHYLPRED [Concomitant]
     Active Substance: METHYLPREDNISOLONE
  15. JAKAFI [Concomitant]
     Active Substance: RUXOLITINIB
  16. GABAPENTIN. [Concomitant]
     Active Substance: GABAPENTIN
  17. MELOXICAM. [Concomitant]
     Active Substance: MELOXICAM
  18. OMEPRAZOLE. [Concomitant]
     Active Substance: OMEPRAZOLE
  19. OXYCONTIN [Concomitant]
     Active Substance: OXYCODONE HYDROCHLORIDE

REACTIONS (1)
  - Death [None]

NARRATIVE: CASE EVENT DATE: 20161127
